FAERS Safety Report 13462387 (Version 1)
Quarter: 2017Q2

REPORT INFORMATION
  Report Type: Spontaneous
  Country: US (occurrence: US)
  Receive Date: 20170420
  Receipt Date: 20170420
  Transmission Date: 20170830
  Serious: Yes (Hospitalization)
  Sender: FDA-Public Use
  Company Number: US-COVIS PHARMA S.A.R.L.-2017COV00010

PATIENT
  Age: 36 Year
  Sex: Female

DRUGS (1)
  1. DIGOXIN. [Suspect]
     Active Substance: DIGOXIN
     Dosage: 375 ?G, ONCE
     Route: 037

REACTIONS (3)
  - Wrong drug administered [Recovered/Resolved]
  - Neuronal neuropathy [Recovering/Resolving]
  - Paralysis [Recovering/Resolving]
